FAERS Safety Report 10864144 (Version 2)
Quarter: 2015Q1

REPORT INFORMATION
  Report Type: Spontaneous
  Country: US (occurrence: US)
  Receive Date: 20150224
  Receipt Date: 20150303
  Transmission Date: 20150721
  Serious: No
  Sender: FDA-Public Use
  Company Number: US-PFIZER INC-2015066766

PATIENT
  Age: 69 Year
  Sex: Female

DRUGS (2)
  1. DEPO-MEDROL [Suspect]
     Active Substance: METHYLPREDNISOLONE ACETATE
     Indication: MENISCUS INJURY
     Dosage: 80 MG, UNK
  2. DEPO-MEDROL [Suspect]
     Active Substance: METHYLPREDNISOLONE ACETATE
     Dosage: 40 MG, UNK

REACTIONS (6)
  - Headache [Unknown]
  - Arrhythmia [Unknown]
  - Emotional disorder [Unknown]
  - Condition aggravated [Unknown]
  - Insomnia [Unknown]
  - Post-traumatic stress disorder [Unknown]
